FAERS Safety Report 18005952 (Version 1)
Quarter: 2020Q3

REPORT INFORMATION
  Report Type: Spontaneous
  Country: US (occurrence: US)
  Receive Date: 20200709
  Receipt Date: 20200709
  Transmission Date: 20201103
  Serious: Yes (Hospitalization, Disabling)
  Sender: FDA-Public Use
  Company Number: None

PATIENT
  Age: 48 Year
  Sex: Female
  Weight: 90 kg

DRUGS (1)
  1. LEVOFLOXACIN. [Suspect]
     Active Substance: LEVOFLOXACIN
     Indication: MASTITIS
     Dates: start: 20200630, end: 20200706

REACTIONS (4)
  - Gait inability [None]
  - Tendon pain [None]
  - Arthralgia [None]
  - Swelling [None]

NARRATIVE: CASE EVENT DATE: 20200703
